FAERS Safety Report 4730284-1 (Version None)
Quarter: 2005Q3

REPORT INFORMATION
  Report Type: 
  Country: None (occurrence: None)
  Receive Date: 20050729
  Receipt Date: 20050722
  Transmission Date: 20060218
  Serious: Yes (Other)
  Sender: FDA-Public Use
  Company Number: 005279

PATIENT
  Sex: Female

DRUGS (2)
  1. MEDROXYPROGESTERONE ACETATE [Suspect]
     Dosage: ORAL
     Route: 048
     Dates: start: 19910401, end: 20020701
  2. PREMARIN [Suspect]
     Dosage: ORAL
     Route: 048
     Dates: start: 19910401, end: 20020701

REACTIONS (1)
  - BREAST CANCER FEMALE [None]
